FAERS Safety Report 5806731-0 (Version None)
Quarter: 2008Q3

REPORT INFORMATION
  Report Type: 
  Country: None (occurrence: None)
  Receive Date: 20080711
  Receipt Date: 20080710
  Transmission Date: 20090109
  Serious: Yes (Other)
  Sender: FDA-Public Use
  Company Number: GB-RANBAXY-2008RR-16288

PATIENT

DRUGS (9)
  1. AMOXICILLIN [Suspect]
     Indication: CHRONIC OBSTRUCTIVE PULMONARY DISEASE
     Dosage: 500 MG, TID
     Route: 048
     Dates: start: 20080610, end: 20080615
  2. ASPIRIN [Concomitant]
     Dosage: 75 MG, QD
  3. DILTIAZEM HYDROCHLORIDE [Concomitant]
     Dosage: 180 MG, QD
  4. NITROGLYCERIN [Concomitant]
     Dosage: 2 DF, PRN
  5. LEVOTHYROXINE SODIUM [Concomitant]
     Dosage: 100 UG, QD
  6. ALBUTEROL [Concomitant]
     Dosage: 2 DF, PRN
     Route: 055
  7. SERETIDE [Concomitant]
     Dosage: 2 DF, BID
     Route: 055
  8. SIMVASTATIN [Concomitant]
     Dosage: 20 MG, QD
  9. TIOTROPIUM BROMIDE [Concomitant]
     Dosage: 18 UG, QD
     Route: 055

REACTIONS (2)
  - HYPONATRAEMIA [None]
  - MYALGIA [None]
